FAERS Safety Report 5832490-1 (Version None)
Quarter: 2008Q3

REPORT INFORMATION
  Report Type: 
  Country: None (occurrence: None)
  Receive Date: 20080731
  Receipt Date: 20080718
  Transmission Date: 20090109
  Serious: Yes (Hospitalization, Other)
  Sender: FDA-Public Use
  Company Number: RENA-1000087

PATIENT
  Age: 84 Year
  Sex: Female

DRUGS (6)
  1. RENAGEL [Suspect]
     Indication: HYPERPHOSPHATAEMIA
     Dosage: ORAL
     Route: 048
     Dates: end: 20080215
  2. FUROSEMIDE [Suspect]
     Indication: RENAL FAILURE CHRONIC
     Dosage: ORAL
     Route: 048
     Dates: end: 20080215
  3. ROCALTROL [Suspect]
     Indication: RENAL FAILURE CHRONIC
     Dosage: ORAL
     Route: 048
     Dates: end: 20080215
  4. SINTROM [Suspect]
     Indication: THROMBOSIS PROPHYLAXIS
     Dosage: ORAL
     Route: 048
  5. NEORECORMON (EPOETIN BETA) [Suspect]
     Indication: RENAL FAILURE CHRONIC
     Dosage: ORAL
     Route: 048
     Dates: end: 20080211
  6. LOVENOX [Suspect]
     Indication: ANTICOAGULANT THERAPY

REACTIONS (7)
  - DIALYSIS [None]
  - EOSINOPHILIA [None]
  - HYPOTENSION [None]
  - JUGULAR VEIN THROMBOSIS [None]
  - PRURITUS [None]
  - RASH MORBILLIFORM [None]
  - TOXIC SKIN ERUPTION [None]
